FAERS Safety Report 8071411-0 (Version None)
Quarter: 2012Q1

REPORT INFORMATION
  Report Type: 
  Country: None (occurrence: None)
  Receive Date: 20120125
  Receipt Date: 20120117
  Transmission Date: 20120608
  Serious: Yes (Hospitalization)
  Sender: FDA-Public Use
  Company Number: US-ELI_LILLY_AND_COMPANY-US201201005637

PATIENT
  Sex: Female

DRUGS (3)
  1. HUMALOG MIX 75/25 [Suspect]
     Indication: DIABETES MELLITUS
     Dosage: 60 U, TID
     Route: 065
     Dates: start: 20120113
  2. LEVEMIR [Concomitant]
     Dosage: UNK
     Dates: end: 20120113
  3. HUMALOG [Suspect]
     Indication: DIABETES MELLITUS
     Dosage: 40 U, PRN
     Route: 065
     Dates: end: 20120113

REACTIONS (8)
  - SKIN DISCOLOURATION [None]
  - LIMB CRUSHING INJURY [None]
  - PAIN [None]
  - BLOOD GLUCOSE INCREASED [None]
  - PAIN IN EXTREMITY [None]
  - VENOUS INSUFFICIENCY [None]
  - OEDEMA PERIPHERAL [None]
  - FALL [None]
